FAERS Safety Report 4887815-0 (Version None)
Quarter: 2006Q1

REPORT INFORMATION
  Report Type: 
  Country: None (occurrence: None)
  Receive Date: 20060123
  Receipt Date: 20050204
  Transmission Date: 20060701
  Serious: Yes (Hospitalization, Disabling)
  Sender: FDA-Public Use
  Company Number: US-MERCK-0502USA00560

PATIENT
  Age: 43 Year
  Sex: Female
  Weight: 77 kg

DRUGS (6)
  1. VIOXX [Suspect]
     Indication: ARTHRITIS
     Route: 048
     Dates: start: 19991101, end: 20041001
  2. VIOXX [Suspect]
     Route: 048
     Dates: start: 19991101, end: 20041001
  3. ACETAMINOPHEN [Concomitant]
     Route: 048
  4. ASPIRIN [Concomitant]
     Route: 048
  5. ASPIRIN [Concomitant]
     Route: 048
  6. IBUPROFEN [Concomitant]
     Route: 048

REACTIONS (15)
  - ANXIETY [None]
  - BLOOD CHOLESTEROL INCREASED [None]
  - CARDIAC DISORDER [None]
  - CORONARY ARTERY DISEASE [None]
  - CORONARY ARTERY OCCLUSION [None]
  - DEPRESSION [None]
  - HYPERTENSION [None]
  - HYPOTENSION [None]
  - LIPIDS INCREASED [None]
  - MUSCULOSKELETAL CHEST PAIN [None]
  - MYOCARDIAL INFARCTION [None]
  - MYOCARDIAL ISCHAEMIA [None]
  - OVERDOSE [None]
  - RESPIRATORY ALKALOSIS [None]
  - THYROID DISORDER [None]
